FAERS Safety Report 9075008 (Version 1)
Quarter: 2013Q1

REPORT INFORMATION
  Report Type: Spontaneous
  Country: US (occurrence: US)
  Receive Date: 20130129
  Receipt Date: 20130129
  Transmission Date: 20140127
  Serious: No
  Sender: FDA-Public Use
  Company Number: US-BAUSCH-2012BL001686

PATIENT
  Age: 50 Year
  Sex: Female

DRUGS (3)
  1. ZYLET (LOTEPREDNOL ETABONATE 0.5% AND TOBRAMYCIN 0.3% OPHTHALMIC SUSPE [Suspect]
     Indication: EYE INFECTION BACTERIAL
     Route: 047
     Dates: start: 20120208, end: 20120211
  2. ZYLET (LOTEPREDNOL ETABONATE 0.5% AND TOBRAMYCIN 0.3% OPHTHALMIC SUSPE [Suspect]
     Route: 047
     Dates: start: 20120215, end: 20120222
  3. SYSTANE [Concomitant]

REACTIONS (4)
  - Lacrimation increased [Not Recovered/Not Resolved]
  - Scab [Recovered/Resolved]
  - Ocular hyperaemia [None]
  - Eye irritation [None]
